FAERS Safety Report 7591497-7 (Version None)
Quarter: 2011Q3

REPORT INFORMATION
  Report Type: 
  Country: None (occurrence: None)
  Receive Date: 20110701
  Receipt Date: 20110701
  Transmission Date: 20111222
  Serious: Yes (Hospitalization)
  Sender: FDA-Public Use
  Company Number: None

PATIENT
  Age: 69 Year
  Weight: 68.0396 kg

DRUGS (10)
  1. PHENYTOIN [Concomitant]
  2. POTASSIUM CHLORIDE [Concomitant]
  3. METOPROLOL [Concomitant]
  4. LEVETIRACETAM [Concomitant]
  5. LORAZEPAM [Concomitant]
  6. MAGNESIUM SULFATE [Concomitant]
  7. METHYLPREDNISOLONE [Concomitant]
  8. MORPHINE [Concomitant]
  9. ZOSYN [Suspect]
     Indication: PNEUMONIA ASPIRATION
     Dosage: HOSPIRA
     Dates: start: 20110616, end: 20110622
  10. HYDRALAZINE HCL [Concomitant]

REACTIONS (1)
  - PLATELET COUNT DECREASED [None]
